FAERS Safety Report 21436883 (Version 2)
Quarter: 2022Q4

REPORT INFORMATION
  Report Type: Spontaneous
  Country: JP (occurrence: JP)
  Receive Date: 20221010
  Receipt Date: 20221025
  Transmission Date: 20230112
  Serious: Yes (Death, Hospitalization)
  Sender: FDA-Public Use
  Company Number: JP-PFIZER INC-PV202200077884

PATIENT
  Age: 73 Year
  Sex: Male

DRUGS (7)
  1. VYNDAQEL [Suspect]
     Active Substance: TAFAMIDIS MEGLUMINE
     Indication: Amyloidosis senile
     Dosage: 80 MG, DAILY
     Route: 048
     Dates: start: 20211012, end: 20220723
  2. AZOSEMIDE [Concomitant]
     Active Substance: AZOSEMIDE
     Indication: Cardiac failure
     Dosage: 60 MG, DAILY
     Route: 048
     Dates: end: 20220722
  3. SPIRONOLACTONE [Concomitant]
     Active Substance: SPIRONOLACTONE
     Indication: Cardiac failure
     Dosage: 25 MG, DAILY
     Route: 048
     Dates: end: 20220722
  4. METILDIGOXIN [Concomitant]
     Active Substance: METILDIGOXIN
     Indication: Nausea
     Dosage: 0.05 MG, DAILY
     Route: 048
     Dates: end: 20220722
  5. METILDIGOXIN [Concomitant]
     Active Substance: METILDIGOXIN
     Indication: Vomiting
  6. MAGNESIUM OXIDE [Concomitant]
     Active Substance: MAGNESIUM OXIDE
     Indication: Constipation
     Dosage: UNK
     Route: 048
     Dates: end: 20220722
  7. MOSAPRIDE CITRATE [Concomitant]
     Active Substance: MOSAPRIDE CITRATE
     Indication: Constipation
     Dosage: UNK
     Route: 048
     Dates: end: 20220722

REACTIONS (3)
  - Respiratory failure [Fatal]
  - Cardiac failure [Fatal]
  - Off label use [Unknown]

NARRATIVE: CASE EVENT DATE: 20211012
